FAERS Safety Report 6097541-0 (Version None)
Quarter: 2009Q1

REPORT INFORMATION
  Report Type: 
  Country: None (occurrence: None)
  Receive Date: 20090227
  Receipt Date: 20081001
  Transmission Date: 20090719
  Serious: No
  Sender: FDA-Public Use
  Company Number: A0750832A

PATIENT
  Sex: Female

DRUGS (4)
  1. IMITREX [Suspect]
     Indication: MIGRAINE
     Dosage: 6MG AS REQUIRED
     Route: 058
  2. IMITREX [Suspect]
     Route: 048
  3. IMITREX [Suspect]
     Route: 045
  4. UNSPECIFIED MEDICATION [Concomitant]

REACTIONS (11)
  - ABDOMINAL DISCOMFORT [None]
  - BONE PAIN [None]
  - DRUG INEFFECTIVE [None]
  - FATIGUE [None]
  - HEARING IMPAIRED [None]
  - LIP PAIN [None]
  - MIGRAINE [None]
  - NAUSEA [None]
  - SOMNOLENCE [None]
  - TOOTHACHE [None]
  - VISION BLURRED [None]
